FAERS Safety Report 12991197 (Version 1)
Quarter: 2016Q4

REPORT INFORMATION
  Report Type: Spontaneous
  Country: US (occurrence: US)
  Receive Date: 20161130
  Receipt Date: 20161130
  Transmission Date: 20170207
  Serious: Yes (Other)
  Sender: FDA-Public Use
  Company Number: None

PATIENT
  Age: 71 Year
  Weight: 63 kg

DRUGS (28)
  1. TOPIRAMATE. [Concomitant]
     Active Substance: TOPIRAMATE
  2. CRANBERRY. [Concomitant]
     Active Substance: CRANBERRY
  3. PRAMIPEXOLE. [Concomitant]
     Active Substance: PRAMIPEXOLE
  4. PROBIOTIC [Concomitant]
     Active Substance: PROBIOTICS NOS
  5. VITAMIN E [Concomitant]
     Active Substance: .ALPHA.-TOCOPHEROL
  6. CARBAMAZEPINE. [Concomitant]
     Active Substance: CARBAMAZEPINE
  7. DILTIAZEM. [Concomitant]
     Active Substance: DILTIAZEM
  8. E.E.S. [Concomitant]
     Active Substance: ERYTHROMYCIN ETHYLSUCCINATE
  9. MIDODRINE [Concomitant]
     Active Substance: MIDODRINE
  10. OPTIC PRED FORTE [Concomitant]
  11. VITAMIN B COMPLEX [Concomitant]
     Active Substance: CYANOCOBALAMIN\DEXPANTHENOL\NIACINAMIDE\PYRIDOXINE HYDROCHLORIDE\RIBOFLAVIN 5^-PHOSPHATE SODIUM\THIAMINE HYDROCHLORIDE\VITAMIN B COMPLEX
  12. ATORVASTATIN [Concomitant]
     Active Substance: ATORVASTATIN
  13. BENAZEPRIL [Concomitant]
     Active Substance: BENAZEPRIL HYDROCHLORIDE
  14. CARVEDILOL. [Concomitant]
     Active Substance: CARVEDILOL
  15. METFORMIN [Concomitant]
     Active Substance: METFORMIN HYDROCHLORIDE
  16. MULTI VITAMINS [Concomitant]
     Active Substance: VITAMINS
  17. FIORACET [Concomitant]
     Active Substance: ACETAMINOPHEN\BUTALBITAL\CAFFEINE
  18. LEVOTHYROXINE. [Concomitant]
     Active Substance: LEVOTHYROXINE
  19. OMEPRAZOLE. [Concomitant]
     Active Substance: OMEPRAZOLE
  20. ONDANSETRON [Concomitant]
     Active Substance: ONDANSETRON
  21. REFRESH OPTICAL [Concomitant]
  22. METAXALONE. [Concomitant]
     Active Substance: METAXALONE
  23. TIZANIDINE. [Concomitant]
     Active Substance: TIZANIDINE
  24. PYRIDIUM [Concomitant]
     Active Substance: PHENAZOPYRIDINE
  25. VITAMIN D [Concomitant]
     Active Substance: CHOLECALCIFEROL
  26. RESTASIS [Suspect]
     Active Substance: CYCLOSPORINE
     Indication: PRODUCT USED FOR UNKNOWN INDICATION
     Dosage: ?          QUANTITY:1 VIAL;?
     Route: 047
     Dates: start: 20161127, end: 20161129
  27. MIRALAX [Concomitant]
     Active Substance: POLYETHYLENE GLYCOL 3350
  28. VITAMIN C [Concomitant]
     Active Substance: ASCORBIC ACID

REACTIONS (1)
  - Hypertension [None]

NARRATIVE: CASE EVENT DATE: 20161129
